FAERS Safety Report 12025194 (Version 1)
Quarter: 2016Q1

REPORT INFORMATION
  Report Type: Report from Study
  Country: US (occurrence: US)
  Receive Date: 20160206
  Receipt Date: 20160206
  Transmission Date: 20160526
  Serious: No
  Sender: FDA-Public Use
  Company Number: US-ABBVIE-15K-163-1480458-00

PATIENT
  Age: 46 Year
  Sex: Female

DRUGS (1)
  1. HUMIRA [Suspect]
     Active Substance: ADALIMUMAB
     Indication: ANKYLOSING SPONDYLITIS
     Route: 065
     Dates: start: 20151007

REACTIONS (7)
  - Asthenia [Unknown]
  - Paraesthesia [Unknown]
  - Muscle twitching [Unknown]
  - Pain [Unknown]
  - Arthralgia [Unknown]
  - Cardiac disorder [Unknown]
  - Feeling hot [Unknown]

NARRATIVE: CASE EVENT DATE: 201510
